FAERS Safety Report 23331396 (Version 1)
Quarter: 2023Q4

REPORT INFORMATION
  Report Type: Spontaneous
  Country: FR (occurrence: FR)
  Receive Date: 20231222
  Receipt Date: 20231222
  Transmission Date: 20240109
  Serious: Yes (Death, Life-Threatening, Hospitalization, Other)
  Sender: FDA-Public Use
  Company Number: FR-SA-SAC20231215000834

PATIENT
  Age: 82 Year
  Sex: Male

DRUGS (1)
  1. LIBTAYO [Suspect]
     Active Substance: CEMIPLIMAB-RWLC
     Indication: Bronchial disorder
     Dosage: 350 MG
     Route: 042
     Dates: start: 20230922, end: 20230922

REACTIONS (2)
  - Myositis [Fatal]
  - Myocarditis [Recovered/Resolved]

NARRATIVE: CASE EVENT DATE: 20230101
